FAERS Safety Report 6470684-5 (Version None)
Quarter: 2009Q4

REPORT INFORMATION
  Report Type: 
  Country: None (occurrence: None)
  Receive Date: 20091203
  Receipt Date: 20091124
  Transmission Date: 20100525
  Serious: Yes (Hospitalization)
  Sender: FDA-Public Use
  Company Number: A0772170A

PATIENT
  Age: 64 Year
  Sex: Male
  Weight: 102.3 kg

DRUGS (4)
  1. AVANDIA [Suspect]
     Dosage: 8MG TWICE PER DAY
     Route: 065
     Dates: start: 20011205, end: 20060222
  2. AVANDARYL [Suspect]
     Route: 065
     Dates: start: 20050101, end: 20080501
  3. METFORMIN HCL [Concomitant]
     Dates: start: 20020101, end: 20020101
  4. AMARYL [Concomitant]
     Dates: start: 20010402, end: 20030115

REACTIONS (8)
  - ASTHENIA [None]
  - CARDIAC DISORDER [None]
  - CARDIAC FAILURE CONGESTIVE [None]
  - CARDIOVASCULAR DISORDER [None]
  - CEREBROVASCULAR ACCIDENT [None]
  - DYSPNOEA [None]
  - INJURY [None]
  - MYOCARDIAL INFARCTION [None]
